FAERS Safety Report 6630553-4 (Version None)
Quarter: 2010Q1

REPORT INFORMATION
  Report Type: 
  Country: None (occurrence: None)
  Receive Date: 20100311
  Receipt Date: 20090902
  Transmission Date: 20100710
  Serious: No
  Sender: FDA-Public Use
  Company Number: US-BIOGENIDEC-2008BI024832

PATIENT
  Age: 32 Year
  Sex: Female

DRUGS (6)
  1. AVONEX [Suspect]
     Indication: MULTIPLE SCLEROSIS
     Route: 030
     Dates: start: 20030425, end: 20030101
  2. AVONEX [Suspect]
     Route: 030
     Dates: start: 20030101, end: 20030801
  3. AVONEX [Suspect]
     Route: 030
     Dates: start: 20030801, end: 20050401
  4. AVONEX [Suspect]
     Dates: start: 20060601, end: 20060101
  5. AVONEX [Suspect]
     Route: 030
     Dates: start: 20060101, end: 20070401
  6. AVONEX [Suspect]
     Dates: start: 20090101, end: 20090101

REACTIONS (2)
  - FALL [None]
  - PAIN IN EXTREMITY [None]
